FAERS Safety Report 7494646-4 (Version None)
Quarter: 2011Q2

REPORT INFORMATION
  Report Type: 
  Country: None (occurrence: None)
  Receive Date: 20110520
  Receipt Date: 20110516
  Transmission Date: 20111010
  Serious: Yes (Other)
  Sender: FDA-Public Use
  Company Number: KR-ROCHE-777312

PATIENT

DRUGS (4)
  1. CETUXIMAB [Suspect]
     Indication: GASTRIC CANCER
     Dosage: GIVEN FOR 2 HOURS AS LOADING DOSE, FORM: INFUSION
     Route: 042
  2. CAPECITABINE [Suspect]
     Indication: GASTRIC CANCER
     Dosage: ON DAYS 1-14 OF EVERY 3 WEEK-CYCLE
     Route: 048
  3. CETUXIMAB [Suspect]
     Dosage: GIVEN OVER 1 HOUR AS MAINTENANCE THERAPY.
     Route: 042
  4. OXALIPLATIN [Suspect]
     Indication: GASTRIC CANCER
     Dosage: ON DAY 1OF EACH CYCLE FOR 2 HOURS, FORM: INFUSION
     Route: 042

REACTIONS (10)
  - ANAEMIA [None]
  - ESCHERICHIA SEPSIS [None]
  - INTERSTITIAL LUNG DISEASE [None]
  - CEREBROVASCULAR ACCIDENT [None]
  - PALMAR-PLANTAR ERYTHRODYSAESTHESIA SYNDROME [None]
  - THROMBOCYTOPENIA [None]
  - VOMITING [None]
  - TUMOUR HAEMORRHAGE [None]
  - DIARRHOEA [None]
  - ABDOMINAL PAIN [None]
